FAERS Safety Report 5655536-2 (Version None)
Quarter: 2008Q1

REPORT INFORMATION
  Report Type: 
  Country: None (occurrence: None)
  Receive Date: 20080219
  Receipt Date: 20080109
  Transmission Date: 20080703
  Serious: No
  Sender: FDA-Public Use
  Company Number: WAES 0801USA01823

PATIENT
  Age: 50 Year
  Sex: Male

DRUGS (3)
  1. JANUVIA [Suspect]
     Indication: TYPE 2 DIABETES MELLITUS
     Dosage: 100 MG/DAILY/PO
     Route: 048
  2. AMARYL [Concomitant]
  3. METFORMIN HCL [Concomitant]

REACTIONS (2)
  - DIARRHOEA [None]
  - VOMITING [None]
